FAERS Safety Report 5933637-9 (Version None)
Quarter: 2008Q4

REPORT INFORMATION
  Report Type: 
  Country: None (occurrence: None)
  Receive Date: 20081024
  Receipt Date: 20081021
  Transmission Date: 20090506
  Serious: Yes (Hospitalization)
  Sender: FDA-Public Use
  Company Number: POMP-1000356

PATIENT
  Age: 39 Year
  Sex: Female

DRUGS (1)
  1. MYOZYME [Suspect]
     Indication: GLYCOGEN STORAGE DISEASE TYPE II
     Dosage: 20 MG/KG, QOW, INTRAVENOUS
     Route: 042
     Dates: start: 20080216

REACTIONS (4)
  - BEDRIDDEN [None]
  - PAIN [None]
  - RESPIRATORY DISORDER [None]
  - SPINAL FRACTURE [None]
